FAERS Safety Report 8950339 (Version 1)
Quarter: 2012Q4

REPORT INFORMATION
  Report Type: Spontaneous
  Country: US (occurrence: None)
  Receive Date: 20121130
  Receipt Date: 20121130
  Transmission Date: 20130627
  Serious: No
  Sender: FDA-Public Use
  Company Number: None

PATIENT
  Age: 76 Year
  Sex: Female

DRUGS (15)
  1. XARELTO [Suspect]
     Dosage: 20 mg dialy po
     Route: 048
     Dates: start: 20120507
  2. ACETAMINOPHEN [Concomitant]
  3. ADVAIR DISKUS [Concomitant]
  4. AMLODIPINE [Concomitant]
  5. CALTRATE WITH VITAMIN D [Concomitant]
  6. DIPHENHYDRAMINE [Concomitant]
  7. FUROSEMIDE [Concomitant]
  8. HYDROCORTISONE AND PRAMOXINE [Concomitant]
  9. LOSARTAN [Concomitant]
  10. MELOXICAM [Concomitant]
  11. NEXIUM [Concomitant]
  12. RANITIDINE [Concomitant]
  13. ROBITUSSIN COUGH AND COLD [Concomitant]
  14. SIMVASTATIN [Concomitant]
  15. SINGULAIR [Concomitant]

REACTIONS (1)
  - Pruritus [None]
